FAERS Safety Report 15075171 (Version 1)
Quarter: 2018Q2

REPORT INFORMATION
  Report Type: Spontaneous
  Country: US (occurrence: US)
  Receive Date: 20180627
  Receipt Date: 20180627
  Transmission Date: 20180711
  Serious: No
  Sender: FDA-Public Use
  Company Number: US-SAOL THERAPEUTICS-2017SAO03489

PATIENT
  Age: 61 Year
  Sex: Male
  Weight: 102 kg

DRUGS (7)
  1. BUPIVACAINE. [Suspect]
     Active Substance: BUPIVACAINE
     Dosage: 3.352 ?G, \DAY
     Route: 037
  2. BACLOFEN. [Concomitant]
     Active Substance: BACLOFEN
     Route: 048
  3. UNSPECIFIED MEDICATIONS [Concomitant]
     Active Substance: UNSPECIFIED INGREDIENT
  4. BACLOFEN. [Suspect]
     Active Substance: BACLOFEN
     Indication: PAIN
     Dosage: 50.28 ?G, \DAY
     Route: 037
  5. LONG ACTING MORPHINE [Concomitant]
     Route: 048
  6. MORPHINE [Suspect]
     Active Substance: MORPHINE
     Dosage: 6.704 MG, \DAY
     Route: 037
  7. SHORT ACTING MORPHINE [Concomitant]
     Route: 048

REACTIONS (4)
  - Somnolence [Recovered/Resolved]
  - Off label use [Unknown]
  - Pain [Not Recovered/Not Resolved]
  - Device infusion issue [Unknown]

NARRATIVE: CASE EVENT DATE: 20171213
